FAERS Safety Report 11158497 (Version 2)
Quarter: 2015Q2

REPORT INFORMATION
  Report Type: Report from Study
  Country: DE (occurrence: DE)
  Receive Date: 20150603
  Receipt Date: 20150624
  Transmission Date: 20150821
  Serious: Yes (Hospitalization)
  Sender: FDA-Public Use
  Company Number: DE-PFIZER INC-2015179421

PATIENT
  Age: 61 Year
  Sex: Female
  Weight: 77 kg

DRUGS (7)
  1. GEMTUZUMAB OZOGAMICIN [Suspect]
     Active Substance: GEMTUZUMAB OZOGAMICIN
     Indication: ACUTE MYELOID LEUKAEMIA
     Dosage: 5.31 MG, CYCLIC (DAILY)
     Dates: start: 20150324
  2. ATRA [Suspect]
     Active Substance: TRETINOIN
     Indication: ACUTE MYELOID LEUKAEMIA
     Dosage: 80 MG, CYCLIC (DAILY FROM D6 TO D8)
     Dates: start: 20150325, end: 20150327
  3. NEUPOGEN [Concomitant]
     Active Substance: FILGRASTIM
     Indication: ACUTE MYELOID LEUKAEMIA
     Dosage: 300 NG, DAILY
     Dates: start: 20150330, end: 20150419
  4. IDARUBICIN [Suspect]
     Active Substance: IDARUBICIN
     Indication: ACUTE MYELOID LEUKAEMIA
     Dosage: 21 MG, CYCLIC (DAILY)
     Dates: start: 20150320
  5. ATRA [Suspect]
     Active Substance: TRETINOIN
     Dosage: 30 MG, CYCLIC (DAILY FROM D9 TO D21)
     Dates: start: 20150328, end: 20150409
  6. CYTARABINE. [Suspect]
     Active Substance: CYTARABINE
     Indication: ACUTE MYELOID LEUKAEMIA
     Dosage: 177 MG, CYCLIC (DAILY)
     Dates: start: 20150320
  7. ETOPOSIDE. [Suspect]
     Active Substance: ETOPOSIDE
     Indication: ACUTE MYELOID LEUKAEMIA
     Dosage: 177 MG, CYCLIC (DAILY)
     Dates: start: 20150320

REACTIONS (1)
  - Abscess limb [Recovered/Resolved]

NARRATIVE: CASE EVENT DATE: 20150404
